FAERS Safety Report 4906581-3 (Version None)
Quarter: 2006Q1

REPORT INFORMATION
  Report Type: 
  Country: None (occurrence: None)
  Receive Date: 20060209
  Receipt Date: 20050603
  Transmission Date: 20060701
  Serious: Yes (Hospitalization, Other)
  Sender: FDA-Public Use
  Company Number: US-MERCK-0506USA00985

PATIENT
  Age: 57 Year
  Sex: Male
  Weight: 109 kg

DRUGS (1)
  1. VIOXX [Suspect]
     Route: 048
     Dates: end: 20030801

REACTIONS (13)
  - ANAL FISTULA [None]
  - CARDIAC ABLATION [None]
  - CARDIAC DISORDER [None]
  - CEREBROVASCULAR ACCIDENT [None]
  - CHOLECYSTITIS [None]
  - CHOLELITHIASIS [None]
  - DIZZINESS POSTURAL [None]
  - HEMIPARESIS [None]
  - HYPERTENSION [None]
  - LABYRINTHITIS [None]
  - PERIRECTAL ABSCESS [None]
  - TREMOR [None]
  - VERTIGO [None]
